FAERS Safety Report 15880588 (Version 1)
Quarter: 2019Q1

REPORT INFORMATION
  Report Type: Spontaneous
  Country: US (occurrence: US)
  Receive Date: 20190128
  Receipt Date: 20190128
  Transmission Date: 20190417
  Serious: Yes (Other)
  Sender: FDA-Public Use
  Company Number: None

PATIENT
  Sex: Female

DRUGS (2)
  1. ALEMTUZUMAB [Concomitant]
     Active Substance: ALEMTUZUMAB
  2. GILENYA [Suspect]
     Active Substance: FINGOLIMOD HYDROCHLORIDE
     Indication: MULTIPLE SCLEROSIS

REACTIONS (4)
  - Cerebral atrophy [None]
  - Drug ineffective [None]
  - Central nervous system lesion [None]
  - Spinal cord disorder [None]
